FAERS Safety Report 19097197 (Version 1)
Quarter: 2021Q2

REPORT INFORMATION
  Report Type: Spontaneous
  Country: AR (occurrence: AR)
  Receive Date: 20210406
  Receipt Date: 20210406
  Transmission Date: 20210717
  Serious: Yes (Other)
  Sender: FDA-Public Use
  Company Number: NVSC2021AR076110

PATIENT
  Sex: Female

DRUGS (7)
  1. NAPROXEN. [Concomitant]
     Active Substance: NAPROXEN
     Indication: MIGRAINE
     Route: 065
  2. MIKESAN [Concomitant]
     Indication: MIGRAINE
     Route: 065
  3. LOGICAL [Concomitant]
     Indication: MIGRAINE
     Route: 065
  4. JAQUEDRYL [Concomitant]
     Indication: MIGRAINE
     Route: 065
  5. TEGRETOL [Suspect]
     Active Substance: CARBAMAZEPINE
     Indication: MIGRAINE
     Route: 065
  6. KLOSIDOL [METAMIZOLE\PROPOXYPHENE] [Suspect]
     Active Substance: METAMIZOLE\PROPOXYPHENE
     Indication: MIGRAINE
     Dosage: UNK
     Route: 065
  7. MAXALT [Concomitant]
     Active Substance: RIZATRIPTAN BENZOATE
     Indication: MIGRAINE
     Route: 065

REACTIONS (5)
  - Product use in unapproved indication [Unknown]
  - Oesophageal ulcer haemorrhage [Unknown]
  - Drug ineffective [Unknown]
  - Pain [Unknown]
  - Vomiting [Unknown]
